FAERS Safety Report 7488034-4 (Version None)
Quarter: 2011Q2

REPORT INFORMATION
  Report Type: 
  Country: None (occurrence: None)
  Receive Date: 20110518
  Receipt Date: 20110513
  Transmission Date: 20111010
  Serious: No
  Sender: FDA-Public Use
  Company Number: US-PFIZER INC-2011078394

PATIENT
  Age: 56 Year
  Sex: Female
  Weight: 118 kg

DRUGS (1)
  1. PRISTIQ [Suspect]
     Indication: DEPRESSION
     Dosage: 100 MG, 1X/DAY
     Route: 048
     Dates: start: 20090501, end: 20110405

REACTIONS (7)
  - ANXIETY [None]
  - TREMOR [None]
  - ANGER [None]
  - DECREASED APPETITE [None]
  - INSOMNIA [None]
  - CRYING [None]
  - IRRITABILITY [None]
